FAERS Safety Report 4830663-8 (Version None)
Quarter: 2005Q4

REPORT INFORMATION
  Report Type: 
  Country: None (occurrence: None)
  Receive Date: 20051117
  Receipt Date: 20051107
  Transmission Date: 20060501
  Serious: Yes (Life-Threatening, Other)
  Sender: FDA-Public Use
  Company Number: JP-ABBOTT-05P-087-0316667-00

PATIENT
  Sex: Male

DRUGS (14)
  1. SEVOFLURANE [Suspect]
     Indication: STATUS ASTHMATICUS
     Route: 055
     Dates: end: 20051021
  2. PROPOFOL [Suspect]
     Indication: SEDATION
     Route: 042
     Dates: start: 20051016, end: 20051021
  3. AMINOPHYLLINE [Suspect]
     Indication: STATUS ASTHMATICUS
     Route: 042
  4. AMPICILLIN SODIUM AND SULBACTAM SODIUM [Suspect]
     Indication: PNEUMONIA
     Route: 042
     Dates: start: 20051016, end: 20051023
  5. EPINEPHRINE HYDROCHLORIDE [Concomitant]
     Indication: STATUS ASTHMATICUS
     Route: 042
     Dates: start: 20051016, end: 20051018
  6. METHYLPREDNISOLONE SODIUM SUCCINATE [Concomitant]
     Indication: STATUS ASTHMATICUS
     Route: 042
     Dates: start: 20051016, end: 20051018
  7. MAGNESOL [Concomitant]
     Indication: STATUS ASTHMATICUS
     Route: 042
     Dates: start: 20051016, end: 20051017
  8. BETAMETHASONE [Concomitant]
     Indication: STATUS ASTHMATICUS
     Route: 042
     Dates: start: 20051017, end: 20051019
  9. ISOPRENALINE HYDROCHLORIDE [Concomitant]
     Indication: STATUS ASTHMATICUS
     Route: 055
     Dates: start: 20051016, end: 20051025
  10. ISOPRENALINE HYDROCHLORIDE [Concomitant]
     Route: 042
     Dates: start: 20051018, end: 20051018
  11. MIDAZOLAM [Concomitant]
     Indication: SEDATION
     Route: 042
     Dates: start: 20051016, end: 20051021
  12. TERBUTALINE SULFATE [Concomitant]
     Indication: STATUS ASTHMATICUS
     Route: 058
     Dates: start: 20051020, end: 20051030
  13. IMMUNE GLOBULIN INTRAVENOUS (HUMAN) [Concomitant]
     Indication: PNEUMONIA
     Route: 042
     Dates: start: 20051020, end: 20051024
  14. VECURONIUM BROMIDE [Concomitant]
     Indication: SEDATION
     Route: 042
     Dates: start: 20051016, end: 20051021

REACTIONS (15)
  - ACTIVATED PARTIAL THROMBOPLASTIN TIME PROLONGED [None]
  - ALANINE AMINOTRANSFERASE INCREASED [None]
  - ASPARTATE AMINOTRANSFERASE INCREASED [None]
  - BLOOD BILIRUBIN INCREASED [None]
  - BLOOD CREATININE INCREASED [None]
  - BLOOD LACTATE DEHYDROGENASE INCREASED [None]
  - BLOOD POTASSIUM INCREASED [None]
  - BLOOD PRESSURE INCREASED [None]
  - BLOOD UREA INCREASED [None]
  - BRAIN OEDEMA [None]
  - HAEMODIALYSIS [None]
  - LIVER DISORDER [None]
  - MYDRIASIS [None]
  - PLATELET COUNT DECREASED [None]
  - PUPILLARY REFLEX IMPAIRED [None]
